FAERS Safety Report 17976541 (Version 3)
Quarter: 2020Q3

REPORT INFORMATION
  Report Type: Spontaneous
  Country: JP (occurrence: JP)
  Receive Date: 20200703
  Receipt Date: 20200725
  Transmission Date: 20201103
  Serious: Yes (Hospitalization, Other)
  Sender: FDA-Public Use
  Company Number: JP-AMGEN-JPNSP2020105900

PATIENT
  Age: 82 Year
  Sex: Male

DRUGS (30)
  1. PRALIA [Suspect]
     Active Substance: DENOSUMAB
     Indication: OSTEOPOROSIS
     Dosage: 60 MILLIGRAM, Q6MO
     Route: 058
     Dates: start: 20191108, end: 20200511
  2. ACARDI [Concomitant]
     Active Substance: PIMOBENDAN
     Dosage: 5MG/DAY
     Route: 048
     Dates: start: 202002, end: 202005
  3. WARFARIN POTASSIUM [Concomitant]
     Active Substance: WARFARIN POTASSIUM
     Dosage: UNK
     Route: 048
  4. WARFARIN POTASSIUM [Concomitant]
     Active Substance: WARFARIN POTASSIUM
     Dosage: UNK
     Route: 048
  5. SAMSCA [Concomitant]
     Active Substance: TOLVAPTAN
     Dosage: 3.75MG/DAY
     Route: 048
     Dates: start: 202004, end: 202005
  6. ARTIST [Concomitant]
     Active Substance: CARVEDILOL
     Dosage: UNK
     Route: 048
  7. ARTIST [Concomitant]
     Active Substance: CARVEDILOL
     Dosage: 1.25MG/DAY
     Route: 048
     Dates: start: 202002, end: 202005
  8. DIART [Concomitant]
     Active Substance: AZOSEMIDE
     Dosage: UNK
     Route: 048
  9. SAMSCA [Concomitant]
     Active Substance: TOLVAPTAN
     Dosage: 7.5MG/DAY
     Route: 048
     Dates: start: 202005, end: 202005
  10. MIRCERA [Concomitant]
     Active Substance: METHOXY POLYETHYLENE GLYCOL-EPOETIN BETA
     Dosage: 100 UG
     Route: 058
     Dates: start: 20200211
  11. DIART [Concomitant]
     Active Substance: AZOSEMIDE
     Dosage: 30MG/DAY
     Route: 048
     Dates: start: 202004, end: 202005
  12. SAMSCA [Concomitant]
     Active Substance: TOLVAPTAN
     Dosage: 7.5MG/DAY
     Route: 048
     Dates: start: 201912, end: 201912
  13. FEBURIC [Concomitant]
     Active Substance: FEBUXOSTAT
     Dosage: 10MG/DAY
     Route: 065
     Dates: start: 201912, end: 201912
  14. ONEALFA [Concomitant]
     Active Substance: ALFACALCIDOL
     Dosage: 1UG/DAY
     Route: 065
     Dates: start: 202005, end: 202005
  15. ACARDI [Concomitant]
     Active Substance: PIMOBENDAN
     Dosage: UNK
     Route: 048
  16. PARIET [Concomitant]
     Active Substance: RABEPRAZOLE SODIUM
     Dosage: 10MG/DAY
     Route: 048
     Dates: start: 201912, end: 201912
  17. PRALIA [Suspect]
     Active Substance: DENOSUMAB
     Indication: SPINAL COMPRESSION FRACTURE
     Dosage: UNK
     Route: 058
  18. ARTIST [Concomitant]
     Active Substance: CARVEDILOL
     Dosage: 5MG/DAY
     Route: 048
     Dates: start: 201912, end: 201912
  19. PARIET [Concomitant]
     Active Substance: RABEPRAZOLE SODIUM
     Dosage: 10MG/DAY
     Route: 048
     Dates: start: 202002, end: 202005
  20. DIART [Concomitant]
     Active Substance: AZOSEMIDE
     Dosage: 60MG/DAY
     Route: 048
     Dates: start: 201912, end: 201912
  21. DIART [Concomitant]
     Active Substance: AZOSEMIDE
     Dosage: 60MG/DAY
     Route: 048
     Dates: start: 202002, end: 202003
  22. SAMSCA [Concomitant]
     Active Substance: TOLVAPTAN
     Dosage: 7.5MG/DAY
     Route: 048
     Dates: start: 202002, end: 202004
  23. PARIET [Concomitant]
     Active Substance: RABEPRAZOLE SODIUM
     Dosage: UNK
     Route: 048
  24. SAMSCA [Concomitant]
     Active Substance: TOLVAPTAN
     Dosage: UNK
     Route: 048
  25. FEBURIC [Concomitant]
     Active Substance: FEBUXOSTAT
     Dosage: 10MG/DAY
     Route: 065
     Dates: start: 202002, end: 202002
  26. SERENACE [Concomitant]
     Active Substance: HALOPERIDOL
     Dosage: 0.75MG/DAY
     Route: 065
     Dates: start: 202005, end: 202005
  27. FEBURIC [Concomitant]
     Active Substance: FEBUXOSTAT
     Dosage: 10MG/DAY
     Route: 065
     Dates: start: 202003, end: 202005
  28. WARFARIN [Concomitant]
     Active Substance: WARFARIN
     Dosage: 2 MILLIGRAM, QD
     Route: 065
     Dates: start: 202002, end: 202002
  29. DEPAS [ETIZOLAM] [Concomitant]
     Active Substance: ETIZOLAM
     Dosage: UNK
     Route: 048
  30. MIRCERA [Concomitant]
     Active Substance: METHOXY POLYETHYLENE GLYCOL-EPOETIN BETA
     Dosage: UNK
     Route: 040

REACTIONS (4)
  - Cardiac failure congestive [Recovered/Resolved]
  - Blood calcium increased [Recovered/Resolved]
  - Hypocalcaemia [Recovered/Resolved]
  - Cardiac failure congestive [Recovering/Resolving]

NARRATIVE: CASE EVENT DATE: 201911
